FAERS Safety Report 6485763-6 (Version None)
Quarter: 2009Q4

REPORT INFORMATION
  Report Type: 
  Country: None (occurrence: None)
  Receive Date: 20091204
  Receipt Date: 20091124
  Transmission Date: 20100525
  Serious: Yes (Hospitalization)
  Sender: FDA-Public Use
  Company Number: 1000009255

PATIENT
  Age: 52 Year
  Sex: Female
  Weight: 99.8367 kg

DRUGS (13)
  1. LEXAPRO [Suspect]
     Indication: DEPRESSION
     Dosage: 10 MG (10 MG, 1 IN 1 D), ORAL
     Route: 048
     Dates: start: 20090406, end: 20090728
  2. LEXAPRO [Suspect]
     Indication: DEPRESSION
     Dosage: 10 MG (10 MG, 1 IN 1 D), ORAL
     Route: 048
     Dates: start: 20090813, end: 20091021
  3. PNEUMOVAX 23 (INJECTION) [Concomitant]
  4. FLUVIRIN (INJECTION) [Concomitant]
  5. NEXIUM (40 MILLIGRAM) [Concomitant]
  6. XANAX [Concomitant]
  7. ESTRADIOL (0.0375 MILLIGRAM, TRANSDERMAL) [Concomitant]
  8. VALTREX (500 MILLIGRAM) [Concomitant]
  9. TRAZODONE (50 MILLIGRAM) [Concomitant]
  10. WELLBUTRIN XL (150 MILLIGRAM) [Concomitant]
  11. COLACE (100 MILLIGRAM) [Concomitant]
  12. ESZOPICLONE ( 3 MILLIGRAM) [Concomitant]
  13. ZOLPIDEM [Concomitant]

REACTIONS (22)
  - ABDOMINAL PAIN [None]
  - ATELECTASIS [None]
  - BACK PAIN [None]
  - BILE DUCT STONE [None]
  - CELLULITIS [None]
  - CONTUSION [None]
  - DYSPNOEA [None]
  - ERYTHEMA [None]
  - FATIGUE [None]
  - GINGIVAL BLEEDING [None]
  - HAEMOPTYSIS [None]
  - HEADACHE [None]
  - HYPONATRAEMIA [None]
  - HYPOXIA [None]
  - IDIOPATHIC THROMBOCYTOPENIC PURPURA [None]
  - INFLUENZA [None]
  - LUNG INFECTION [None]
  - OEDEMA PERIPHERAL [None]
  - OSTEOARTHRITIS [None]
  - RADICULOPATHY [None]
  - SLEEP APNOEA SYNDROME [None]
  - THROMBOPHLEBITIS [None]
